FAERS Safety Report 18157939 (Version 1)
Quarter: 2020Q3

REPORT INFORMATION
  Report Type: Spontaneous
  Country: BR (occurrence: BR)
  Receive Date: 20200817
  Receipt Date: 20200817
  Transmission Date: 20201103
  Serious: Yes (Other)
  Sender: FDA-Public Use
  Company Number: BR-TEVA-2020-BR-1815864

PATIENT
  Sex: Female

DRUGS (5)
  1. ETOPOSIDE. [Suspect]
     Active Substance: ETOPOSIDE
     Route: 065
  2. IDARUBICIN [Suspect]
     Active Substance: IDARUBICIN
     Route: 065
  3. TEVAMETHO [Suspect]
     Active Substance: METHOTREXATE
     Route: 037
  4. CYTARABINE. [Suspect]
     Active Substance: CYTARABINE
     Route: 065
  5. MITOXANTRONE [Suspect]
     Active Substance: MITOXANTRONE HYDROCHLORIDE
     Route: 065

REACTIONS (3)
  - Sepsis [Unknown]
  - Therapy non-responder [Unknown]
  - Cardiac failure [Unknown]
